FAERS Safety Report 18992808 (Version 1)
Quarter: 2021Q1

REPORT INFORMATION
  Report Type: Spontaneous
  Country: FR (occurrence: FR)
  Receive Date: 20210310
  Receipt Date: 20210310
  Transmission Date: 20210420
  Serious: Yes (Death)
  Sender: FDA-Public Use
  Company Number: FR-PFIZER INC-2021232157

PATIENT
  Age: 92 Year
  Sex: Male

DRUGS (3)
  1. SKENAN [Suspect]
     Active Substance: MORPHINE SULFATE
     Dosage: 40 MG
     Route: 048
     Dates: start: 20210128, end: 20210128
  2. LYRICA [Suspect]
     Active Substance: PREGABALIN
     Dosage: UNK
     Route: 048
     Dates: start: 20210128, end: 20210128
  3. SERESTA [Suspect]
     Active Substance: OXAZEPAM
     Dosage: 10 MG
     Route: 048
     Dates: start: 20210128, end: 20210128

REACTIONS (5)
  - Somnolence [Not Recovered/Not Resolved]
  - Pneumonia aspiration [Fatal]
  - Wrong patient [Not Recovered/Not Resolved]
  - Wrong product administered [Not Recovered/Not Resolved]
  - Vomiting [Not Recovered/Not Resolved]

NARRATIVE: CASE EVENT DATE: 20210128
